FAERS Safety Report 9373591 (Version 2)
Quarter: 2013Q3

REPORT INFORMATION
  Report Type: Spontaneous
  Country: JP (occurrence: JP)
  Receive Date: 20130627
  Receipt Date: 20130727
  Transmission Date: 20140515
  Serious: Yes (Life-Threatening)
  Sender: FDA-Public Use
  Company Number: PHHY2013JP063209

PATIENT
  Age: 41 Year
  Sex: Female
  Weight: 53 kg

DRUGS (1)
  1. CEFEPIME [Suspect]
     Indication: BRONCHITIS
     Dosage: 1 G, DAILY DOSE
     Route: 041
     Dates: start: 20130610, end: 20130610

REACTIONS (3)
  - Shock [Recovered/Resolved]
  - Face oedema [Recovered/Resolved]
  - Dyspnoea [Recovered/Resolved]
